FAERS Safety Report 25066079 (Version 1)
Quarter: 2025Q1

REPORT INFORMATION
  Report Type: Spontaneous
  Country: IT (occurrence: IT)
  Receive Date: 20250312
  Receipt Date: 20250312
  Transmission Date: 20250409
  Serious: Yes (Hospitalization)
  Sender: ABBVIE
  Company Number: IT-ABBVIE-6173183

PATIENT
  Age: 16 Year
  Sex: Female

DRUGS (5)
  1. ASENAPINE MALEATE [Suspect]
     Active Substance: ASENAPINE MALEATE
     Indication: Intentional overdose
     Route: 060
     Dates: start: 20250209
  2. HALCION [Suspect]
     Active Substance: TRIAZOLAM
     Indication: Overdose
     Route: 048
     Dates: start: 20250209
  3. BUPROPION HYDROCHLORIDE [Suspect]
     Active Substance: BUPROPION HYDROCHLORIDE
     Indication: Intentional overdose
     Route: 048
     Dates: start: 20250209
  4. MIRTAZAPINE [Suspect]
     Active Substance: MIRTAZAPINE
     Indication: Intentional overdose
     Route: 048
  5. FLUVOXAMINE [Suspect]
     Active Substance: FLUVOXAMINE
     Indication: Intentional overdose
     Route: 048
     Dates: start: 20250209, end: 20250209

REACTIONS (3)
  - Heart rate increased [Unknown]
  - Loss of consciousness [Unknown]
  - Overdose [Unknown]

NARRATIVE: CASE EVENT DATE: 20250209
